FAERS Safety Report 9334253 (Version 3)
Quarter: 2013Q4

REPORT INFORMATION
  Report Type: Report from Study
  Country: US (occurrence: US)
  Receive Date: 20130606
  Receipt Date: 20131209
  Transmission Date: 20140711
  Serious: Yes (Hospitalization)
  Sender: FDA-Public Use
  Company Number: US-ALEXION-A201301139

PATIENT
  Age: 56 Year
  Sex: Female
  Weight: 91.16 kg

DRUGS (11)
  1. SOLIRIS [Suspect]
     Indication: PAROXYSMAL NOCTURNAL HAEMOGLOBINURIA
     Dosage: 900 MG, Q2W X 12
     Route: 042
  2. CENTRUM [Concomitant]
     Dosage: 18MG-0.4 MG TABLET, 1 TABLET, QD
     Route: 048
  3. COUMADIN [Concomitant]
     Dosage: 7.5 MG, QD
     Route: 048
  4. OS-CAL 500 + D [Concomitant]
     Dosage: 500 MG-200, 2 TABLETS, QD
     Route: 048
  5. PAROXETINE [Concomitant]
     Dosage: 20 MG, QD
     Route: 048
  6. POTASSIUM [Concomitant]
     Dosage: 40 MEQ, QD
     Route: 048
  7. SYNTHROID [Concomitant]
     Dosage: 150 MCG, MON-FRI
     Route: 048
  8. SYNTHROID [Concomitant]
     Dosage: 137 MCG, WEEKEND
  9. TOPAMAX [Concomitant]
     Dosage: 25 MG, QD
     Route: 048
  10. TYLENOL PM, EXTRA STRENGTH [Concomitant]
     Dosage: 500 MG-25 MG TABLETS, 1 TABLET, QD, HS
     Route: 048
  11. ZYRTEC [Concomitant]
     Dosage: 10 MG, QD
     Route: 048

REACTIONS (7)
  - Mastoiditis [Recovered/Resolved]
  - Sinusitis [Recovered/Resolved]
  - Headache [Recovered/Resolved]
  - Balance disorder [Recovered/Resolved]
  - Ear infection [Recovered/Resolved]
  - Ear pain [Recovered/Resolved]
  - Bronchitis [Recovered/Resolved]
